FAERS Safety Report 8387534-2 (Version None)
Quarter: 2012Q2

REPORT INFORMATION
  Report Type: 
  Country: None (occurrence: None)
  Receive Date: 20120525
  Receipt Date: 20120522
  Transmission Date: 20120825
  Serious: Yes (Other)
  Sender: FDA-Public Use
  Company Number: PHEH2012US010634

PATIENT
  Age: 80 Year
  Sex: Female
  Weight: 54.422 kg

DRUGS (3)
  1. EXELON [Suspect]
     Indication: DEMENTIA ALZHEIMER'S TYPE
     Dosage: 4.6 MG, DAILY
     Route: 062
  2. EXELON [Suspect]
     Dosage: 9.5 MG, DAILY
     Route: 062
     Dates: start: 20120401, end: 20120522
  3. EXELON [Suspect]
     Dosage: 4.6 MG, DAILY
     Route: 062

REACTIONS (1)
  - HALLUCINATION [None]
